FAERS Safety Report 13746353 (Version 1)
Quarter: 2017Q3

REPORT INFORMATION
  Report Type: Report from Study
  Country: None (occurrence: US)
  Receive Date: 20170712
  Receipt Date: 20170712
  Transmission Date: 20171127
  Serious: No
  Sender: FDA-Public Use
  Company Number: US-IPSEN BIOPHARMACEUTICALS, INC.-2014-1126

PATIENT
  Age: 44 Year

DRUGS (1)
  1. SOMATULINE UNSPECIFIED [Suspect]
     Active Substance: LANREOTIDE ACETATE
     Indication: PRODUCT USE IN UNAPPROVED INDICATION
     Dosage: NOT REPORTED
     Route: 065

REACTIONS (3)
  - Abdominal distension [Recovering/Resolving]
  - Diarrhoea [Recovering/Resolving]
  - Headache [Recovering/Resolving]

NARRATIVE: CASE EVENT DATE: 20140301
